FAERS Safety Report 6697157-9 (Version None)
Quarter: 2010Q2

REPORT INFORMATION
  Report Type: 
  Country: None (occurrence: None)
  Receive Date: 20100426
  Receipt Date: 20100415
  Transmission Date: 20101027
  Serious: Yes (Other)
  Sender: FDA-Public Use
  Company Number: JP-PFIZER INC-2010049396

PATIENT
  Age: 65 Year
  Sex: Male

DRUGS (2)
  1. SULPERAZON [Suspect]
     Indication: INFECTION
     Dosage: 1 G, 2X/DAY
     Route: 042
     Dates: start: 20100407, end: 20100407
  2. MIRACLID [Concomitant]
     Indication: PANCREATITIS
     Dosage: UNK
     Route: 042
     Dates: start: 20100407, end: 20100410

REACTIONS (2)
  - BLOOD PRESSURE DECREASED [None]
  - LOSS OF CONSCIOUSNESS [None]
